FAERS Safety Report 8412409-X (Version None)
Quarter: 2012Q2

REPORT INFORMATION
  Report Type: 
  Country: None (occurrence: None)
  Receive Date: 20120605
  Receipt Date: 20120523
  Transmission Date: 20120825
  Serious: Yes (Hospitalization, Other)
  Sender: FDA-Public Use
  Company Number: PL-ELI_LILLY_AND_COMPANY-PL201205009706

PATIENT
  Age: 59 Year
  Sex: Female

DRUGS (5)
  1. ERYTHROPOETIN [Concomitant]
  2. GEMCITABINE HYDROCHLORIDE [Suspect]
     Dosage: UNK, ON FIRST AND EIGTH DAY
  3. DOCETAXEL [Concomitant]
     Dosage: UNK, EIGTH DAY OF CYCLE
  4. GRANULOCYTE COLONY STIMULATING FACTOR [Concomitant]
  5. FERRUM [Concomitant]

REACTIONS (8)
  - HOSPITALISATION [None]
  - NEOPLASM PROGRESSION [None]
  - OFF LABEL USE [None]
  - PANCYTOPENIA [None]
  - PURPURA [None]
  - HEPATIC FUNCTION ABNORMAL [None]
  - GENERAL PHYSICAL HEALTH DETERIORATION [None]
  - CHEST PAIN [None]
